FAERS Safety Report 5822923-9 (Version None)
Quarter: 2008Q3

REPORT INFORMATION
  Report Type: 
  Country: None (occurrence: None)
  Receive Date: 20080724
  Receipt Date: 20080724
  Transmission Date: 20090109
  Serious: No
  Sender: FDA-Public Use
  Company Number: None

PATIENT
  Sex: Female
  Weight: 70.3075 kg

DRUGS (1)
  1. MELOXICAM [Suspect]

REACTIONS (8)
  - DIARRHOEA [None]
  - FAECES DISCOLOURED [None]
  - FEAR [None]
  - GASTROOESOPHAGEAL REFLUX DISEASE [None]
  - MUSCULOSKELETAL STIFFNESS [None]
  - OROPHARYNGEAL PAIN [None]
  - PHARMACEUTICAL PRODUCT COMPLAINT [None]
  - ULCER [None]
